FAERS Safety Report 10450963 (Version 2)
Quarter: 2015Q3

REPORT INFORMATION
  Report Type: Spontaneous
  Country: US (occurrence: US)
  Receive Date: 20140912
  Receipt Date: 20150903
  Transmission Date: 20151125
  Serious: Yes (Hospitalization, Other)
  Sender: FDA-Public Use
  Company Number: US-PFIZER INC-2014250389

PATIENT
  Age: 57 Year
  Sex: Female
  Weight: 126.98 kg

DRUGS (5)
  1. PREDNISONE. [Suspect]
     Active Substance: PREDNISONE
     Dosage: UNK
  2. LIPITOR [Suspect]
     Active Substance: ATORVASTATIN CALCIUM
     Indication: BLOOD CHOLESTEROL INCREASED
     Dosage: UNK, 2X/DAY
     Dates: start: 2000, end: 2010
  3. QUETIAPINE [Concomitant]
     Active Substance: QUETIAPINE
     Indication: ANXIETY
     Dosage: 50 MG, 2X/DAY
  4. LIPITOR [Suspect]
     Active Substance: ATORVASTATIN CALCIUM
     Indication: BLOOD CHOLESTEROL
     Dosage: UNK
     Dates: start: 2008
  5. OXYCONTIN [Concomitant]
     Active Substance: OXYCODONE HYDROCHLORIDE
     Dosage: UNK

REACTIONS (6)
  - Hepatitis C [Not Recovered/Not Resolved]
  - Weight increased [Unknown]
  - Blood glucose increased [Unknown]
  - Dyspnoea [Not Recovered/Not Resolved]
  - Hypersensitivity [Unknown]
  - Coma [Unknown]

NARRATIVE: CASE EVENT DATE: 2013
